FAERS Safety Report 6479496-X (Version None)
Quarter: 2009Q4

REPORT INFORMATION
  Report Type: 
  Country: None (occurrence: None)
  Receive Date: 20091207
  Receipt Date: 20091207
  Transmission Date: 20100525
  Serious: No
  Sender: FDA-Public Use
  Company Number: None

PATIENT
  Sex: Female
  Weight: 64.4108 kg

DRUGS (2)
  1. SUPER CLEANSE 624 MG OF PROPRIETARY BLEND NATURE'S SECRET [Suspect]
     Indication: CONSTIPATION
     Dosage: 1-2 CAPSULES 2 TIMES DAILY PO
     Route: 048
     Dates: start: 20080201, end: 20090413
  2. SUPER CLEANSE 624 MG OF PROPRIETARY BLEND NATURE'S SECRET [Suspect]
     Indication: GASTROINTESTINAL DISORDER THERAPY
     Dosage: 1-2 CAPSULES 2 TIMES DAILY PO
     Route: 048
     Dates: start: 20080201, end: 20090413

REACTIONS (4)
  - BLOOD COUNT ABNORMAL [None]
  - BONE MARROW FAILURE [None]
  - PANCYTOPENIA [None]
  - SYSTEMIC LUPUS ERYTHEMATOSUS [None]
